FAERS Safety Report 4944287-5 (Version None)
Quarter: 2006Q1

REPORT INFORMATION
  Report Type: 
  Country: None (occurrence: None)
  Receive Date: 20060315
  Receipt Date: 20060214
  Transmission Date: 20060701
  Serious: Yes (Death)
  Sender: FDA-Public Use
  Company Number: JP-JPN-A200600589

PATIENT
  Age: 86 Year
  Sex: Male
  Weight: 43 kg

DRUGS (6)
  1. PAXIL [Suspect]
     Indication: DEPRESSION
     Dosage: 20MG PER DAY
     Route: 048
     Dates: start: 20060104, end: 20060211
  2. PAXIL [Suspect]
     Dosage: 10MG PER DAY
     Route: 048
     Dates: start: 20060111, end: 20060211
  3. TETRAMIDE [Concomitant]
     Indication: DEPRESSION
     Route: 048
     Dates: start: 20051221, end: 20060211
  4. RISPERDAL [Concomitant]
     Indication: ANXIETY
     Route: 048
     Dates: end: 20060208
  5. DEPROMEL [Concomitant]
     Indication: DEPRESSION
     Route: 048
     Dates: start: 20051209, end: 20051213
  6. GRAMALIL [Concomitant]
     Indication: DELIRIUM
     Dosage: 25MG PER DAY
     Route: 048
     Dates: start: 20051214, end: 20060211

REACTIONS (3)
  - COMPLETED SUICIDE [None]
  - INJURY ASPHYXIATION [None]
  - SUICIDAL IDEATION [None]
